FAERS Safety Report 8973889 (Version 1)
Quarter: 2012Q4

REPORT INFORMATION
  Report Type: 
  Country: US (occurrence: US)
  Receive Date: 20121218
  Receipt Date: 20121218
  Transmission Date: 20130627
  Serious: Yes (Death)
  Sender: FDA-Public Use
  Company Number: US-GLAXOSMITHKLINE-A1005395A

PATIENT
  Age: 68 Year
  Sex: Male

DRUGS (3)
  1. ADVAIR [Suspect]
     Indication: ASTHMA
     Route: 055
     Dates: start: 2002
  2. ALBUTEROL [Concomitant]
  3. CLOTRIMAZOLE [Concomitant]

REACTIONS (4)
  - Renal failure [Fatal]
  - Candidiasis [Unknown]
  - Dry eye [Unknown]
  - Stomatitis [Unknown]
